FAERS Safety Report 15518072 (Version 1)
Quarter: 2018Q4

REPORT INFORMATION
  Report Type: Spontaneous
  Country: US (occurrence: US)
  Receive Date: 20181018
  Receipt Date: 20181018
  Transmission Date: 20190205
  Serious: Yes (Other)
  Sender: FDA-Public Use
  Company Number: None

PATIENT
  Age: 38 Year
  Sex: Male
  Weight: 116.55 kg

DRUGS (1)
  1. AMLODIPINE BESYLATE TABS 10MG, GENERIC FOR NORVASC [Suspect]
     Active Substance: AMLODIPINE BESYLATE
     Indication: HYPERTENSION
     Dosage: ?          QUANTITY:1 TABLET(S);?
     Route: 048
     Dates: start: 20181006, end: 20181018

REACTIONS (5)
  - Headache [None]
  - Therapy change [None]
  - Drug ineffective [None]
  - Sluggishness [None]
  - Blood pressure decreased [None]

NARRATIVE: CASE EVENT DATE: 20181006
